FAERS Safety Report 7220370-9 (Version None)
Quarter: 2011Q1

REPORT INFORMATION
  Report Type: 
  Country: None (occurrence: None)
  Receive Date: 20110111
  Receipt Date: 20110104
  Transmission Date: 20110831
  Serious: Yes (Hospitalization)
  Sender: FDA-Public Use
  Company Number: CH-PFIZER INC-2010127230

PATIENT
  Age: 43 Year
  Sex: Female

DRUGS (12)
  1. ETOPOSIDE [Suspect]
     Indication: HODGKIN'S DISEASE
     Dosage: 1 DF, CYCLIC
     Route: 051
     Dates: start: 20081101, end: 20090301
  2. PANTOZOL [Concomitant]
     Dosage: UNK
  3. WELLVONE [Concomitant]
     Dosage: UNK
  4. DIFLUCAN [Concomitant]
     Dosage: UNK
  5. DOXORUBICIN HCL [Suspect]
     Indication: HODGKIN'S DISEASE
     Dosage: 1 DF, CYCLIC
     Route: 051
     Dates: start: 20081101, end: 20090301
  6. PREDNISONE [Suspect]
     Indication: HODGKIN'S DISEASE
     Dosage: 1 DF, CYCLIC
     Route: 048
     Dates: start: 20081101, end: 20090301
  7. TRANSIPEG [Concomitant]
     Dosage: UNK
  8. BLEOMYCIN [Suspect]
     Indication: HODGKIN'S DISEASE
     Dosage: 1 DF, CYCLIC
     Route: 051
     Dates: start: 20081101, end: 20090301
  9. VINCRISTINE SULFATE [Suspect]
     Indication: HODGKIN'S DISEASE
     Dosage: 1 DF, CYCLIC
     Route: 051
     Dates: start: 20081101, end: 20090301
  10. CYCLOPHOSPHAMIDE [Suspect]
     Indication: HODGKIN'S DISEASE
     Dosage: 1 DF, CYCLIC
     Route: 051
     Dates: start: 20081101, end: 20090301
  11. TAZOBAC [Concomitant]
     Dosage: UNK
  12. PROCTO-GLYVENOL [Concomitant]
     Dosage: UNK

REACTIONS (11)
  - AGRANULOCYTOSIS [None]
  - AMENORRHOEA [None]
  - PYREXIA [None]
  - ABSCESS [None]
  - VOMITING [None]
  - SEPSIS [None]
  - PANCYTOPENIA [None]
  - BONE DENSITY DECREASED [None]
  - NAUSEA [None]
  - ARTHRALGIA [None]
  - MYALGIA [None]
